FAERS Safety Report 8884671 (Version 3)
Quarter: 2013Q2

REPORT INFORMATION
  Report Type: Spontaneous
  Country: US (occurrence: US)
  Receive Date: 20121104
  Receipt Date: 20130409
  Transmission Date: 20140414
  Serious: Yes (Other)
  Sender: FDA-Public Use
  Company Number: US-009507513-1210USA013693

PATIENT
  Sex: Male
  Weight: 77.55 kg

DRUGS (26)
  1. ISENTRESS [Suspect]
     Indication: HIV INFECTION
     Route: 048
  2. ZIAGEN [Suspect]
     Indication: HIV INFECTION
     Dosage: 300 MG, BID
     Route: 048
     Dates: start: 20080320
  3. VIREAD [Suspect]
     Indication: HIV INFECTION
     Dosage: UNK
     Dates: start: 200202, end: 20120820
  4. NORVIR [Suspect]
     Dosage: 1 DF, Q12H
     Route: 048
     Dates: start: 2002
  5. LIPITOR [Suspect]
     Dosage: UNK
     Dates: start: 201112, end: 201208
  6. PREZISTA [Concomitant]
     Indication: HIV INFECTION
  7. INTELENCE [Concomitant]
  8. VALTREX [Suspect]
     Indication: HERPES ZOSTER
  9. CARNITINE [Suspect]
     Indication: PRODUCT USED FOR UNKNOWN INDICATION
  10. ACETYLCARNITINE [Suspect]
     Indication: PRODUCT USED FOR UNKNOWN INDICATION
  11. OMEGA-3 MARINE TRIGLYCERIDES [Suspect]
     Indication: PRODUCT USED FOR UNKNOWN INDICATION
  12. LEVOGLUTAMIDE [Suspect]
     Indication: PRODUCT USED FOR UNKNOWN INDICATION
  13. ERGOCALCIFEROL [Suspect]
     Indication: PRODUCT USED FOR UNKNOWN INDICATION
  14. VITAMIN E [Suspect]
     Indication: PRODUCT USED FOR UNKNOWN INDICATION
  15. SELENIUM [Suspect]
     Indication: PRODUCT USED FOR UNKNOWN INDICATION
  16. SILYMARIN [Suspect]
     Indication: PRODUCT USED FOR UNKNOWN INDICATION
  17. ALFALFA [Suspect]
     Indication: PRODUCT USED FOR UNKNOWN INDICATION
  18. PYRIDOXINE HYDROCHLORIDE [Suspect]
     Indication: PRODUCT USED FOR UNKNOWN INDICATION
  19. RIBOFLAVIN [Suspect]
     Indication: PRODUCT USED FOR UNKNOWN INDICATION
  20. THIOCTIC ACID TROMETHAMINE [Suspect]
     Indication: PRODUCT USED FOR UNKNOWN INDICATION
  21. UBIDECARENONE [Suspect]
     Indication: PRODUCT USED FOR UNKNOWN INDICATION
  22. CHOLINE BITARTRATE [Suspect]
     Indication: PRODUCT USED FOR UNKNOWN INDICATION
  23. STATIN [Suspect]
     Indication: PRODUCT USED FOR UNKNOWN INDICATION
  24. ETRAVIRINE [Suspect]
  25. DARUNAVIR [Suspect]
  26. LEVOCARNITINE [Concomitant]
     Indication: BLOOD CHOLESTEROL

REACTIONS (13)
  - Mitochondrial toxicity [Unknown]
  - H1N1 influenza [Unknown]
  - Lung lobectomy [Unknown]
  - Nervous system disorder [Unknown]
  - Neuropathy peripheral [Recovering/Resolving]
  - Hypoaesthesia [Recovering/Resolving]
  - Paraesthesia [Recovering/Resolving]
  - Eye pain [Recovering/Resolving]
  - Gait disturbance [Recovering/Resolving]
  - Blood magnesium increased [Recovering/Resolving]
  - Tinnitus [Recovering/Resolving]
  - Adverse event [Unknown]
  - Mitochondrial DNA depletion [Unknown]
